FAERS Safety Report 26179326 (Version 1)
Quarter: 2025Q4

REPORT INFORMATION
  Report Type: Spontaneous
  Country: US (occurrence: None)
  Receive Date: 20251218
  Receipt Date: 20251218
  Transmission Date: 20260118
  Serious: Yes (Other)
  Sender: FDA-CTU
  Company Number: None

PATIENT
  Age: 65 Year
  Sex: Male

DRUGS (1)
  1. IMATINIB MESYLATE [Suspect]
     Active Substance: IMATINIB MESYLATE
     Indication: Gastrointestinal stromal tumour
     Dosage: FREQUENCY : TWICE A DAY;

REACTIONS (8)
  - Product dose omission in error [None]
  - Diarrhoea [None]
  - Dry eye [None]
  - Lymphoedema [None]
  - Muscle spasms [None]
  - Muscle spasms [None]
  - Anaemia [None]
  - Neoplasm recurrence [None]
